FAERS Safety Report 9555593 (Version 1)
Quarter: 2013Q3

REPORT INFORMATION
  Report Type: Spontaneous
  Country: US (occurrence: None)
  Receive Date: 20130726
  Receipt Date: 20130726
  Transmission Date: 20140515
  Serious: No
  Sender: FDA-Public Use
  Company Number: UTC-021274

PATIENT
  Age: 69 Year
  Sex: Female
  Weight: 74.5 kg

DRUGS (3)
  1. REMODULIN [Suspect]
     Route: 041
     Dates: start: 20120420
  2. COUMADIN (WARFARIN SODIUM) [Concomitant]
  3. SYNTHROID (LEVOTHYROXINE SODIUM) [Concomitant]

REACTIONS (1)
  - Pulmonary hypertension [None]
